FAERS Safety Report 8252363-7 (Version None)
Quarter: 2012Q2

REPORT INFORMATION
  Report Type: 
  Country: None (occurrence: None)
  Receive Date: 20120402
  Receipt Date: 20110621
  Transmission Date: 20120825
  Serious: No
  Sender: FDA-Public Use
  Company Number: US-ABBOTT-11P-163-0804568-00

PATIENT
  Sex: Male
  Weight: 65.909 kg

DRUGS (3)
  1. SIMVASTATIN [Concomitant]
     Indication: BLOOD CHOLESTEROL ABNORMAL
     Dosage: DAILY DOSE:  UNKNOWN
     Route: 065
  2. TESTOSTERONE [Suspect]
     Indication: BLOOD TESTOSTERONE DECREASED
     Dosage: DAILY DOSE: 10 GRAM(S), 2 STICK PACKETS PER DAY
     Route: 062
     Dates: start: 20090101, end: 20100101
  3. TESTOSTERONE [Suspect]
     Dosage: DAILY DOSE: 20 GRAM(S), 4 STICK PACKETS PER DAY
     Route: 062
     Dates: start: 20100101

REACTIONS (4)
  - PRODUCT QUALITY ISSUE [None]
  - BLOOD TESTOSTERONE ABNORMAL [None]
  - MEDICATION RESIDUE [None]
  - PRODUCT ODOUR ABNORMAL [None]
